FAERS Safety Report 6381283-8 (Version None)
Quarter: 2009Q3

REPORT INFORMATION
  Report Type: 
  Country: None (occurrence: None)
  Receive Date: 20090929
  Receipt Date: 20090914
  Transmission Date: 20100115
  Serious: Yes (Hospitalization)
  Sender: FDA-Public Use
  Company Number: NL-GENENTECH-291004

PATIENT
  Sex: Female

DRUGS (7)
  1. BEVACIZUMAB [Suspect]
     Indication: BREAST CANCER
     Dosage: 960 MG, UNK
     Route: 042
     Dates: start: 20081030
  2. CAPECITABINE [Suspect]
     Indication: BREAST CANCER
     Dosage: 1500 MG, UNK
     Route: 048
     Dates: start: 20081030
  3. TAXOL [Suspect]
     Indication: BREAST CANCER
     Dosage: 155 MG, UNK
     Route: 042
     Dates: start: 20081030
  4. LOSARTAN [Concomitant]
     Indication: DRUG USE FOR UNKNOWN INDICATION
     Dosage: UNK
     Dates: start: 20081119
  5. ESOMEPRAZOLE [Concomitant]
     Indication: DRUG USE FOR UNKNOWN INDICATION
     Dosage: UNK
     Dates: start: 20081030
  6. PYRIDOXINE [Concomitant]
     Indication: DRUG USE FOR UNKNOWN INDICATION
     Dosage: UNK
     Dates: start: 20081030
  7. ONDANSETRON [Concomitant]
     Indication: DRUG USE FOR UNKNOWN INDICATION
     Dosage: UNK
     Dates: start: 20081030

REACTIONS (1)
  - PYREXIA [None]
